FAERS Safety Report 5081535-8 (Version None)
Quarter: 2006Q3

REPORT INFORMATION
  Report Type: 
  Country: None (occurrence: None)
  Receive Date: 20060811
  Receipt Date: 20060727
  Transmission Date: 20061208
  Serious: Yes (Other)
  Sender: FDA-Public Use
  Company Number: 2006S1007017

PATIENT
  Age: 57 Year
  Sex: Female

DRUGS (2)
  1. PROBENECID [Suspect]
     Indication: GOUT
     Dosage: PO
     Route: 048
     Dates: start: 20060703, end: 20060724
  2. RAMIPRIL (CON.) [Concomitant]

REACTIONS (3)
  - ANAEMIA [None]
  - PYREXIA [None]
  - RENAL FAILURE [None]
